FAERS Safety Report 13081612 (Version 1)
Quarter: 2017Q1

REPORT INFORMATION
  Report Type: Spontaneous
  Country: TW (occurrence: TW)
  Receive Date: 20170103
  Receipt Date: 20170103
  Transmission Date: 20170428
  Serious: Yes (Other)
  Sender: FDA-Public Use
  Company Number: TW-BAYER-2016-242061

PATIENT
  Sex: Male

DRUGS (2)
  1. NEXAVAR [Suspect]
     Active Substance: SORAFENIB
  2. STIVARGA [Suspect]
     Active Substance: REGORAFENIB
     Indication: COLORECTAL CANCER METASTATIC
     Dosage: UNK
     Dates: start: 201610

REACTIONS (7)
  - Hyperkeratosis [None]
  - Erythema [None]
  - Pain in extremity [None]
  - Activities of daily living impaired [None]
  - Disease progression [None]
  - Palmar-plantar erythrodysaesthesia syndrome [None]
  - Blister [None]

NARRATIVE: CASE EVENT DATE: 2016
